FAERS Safety Report 6021708-0 (Version None)
Quarter: 2008Q4

REPORT INFORMATION
  Report Type: 
  Country: None (occurrence: None)
  Receive Date: 20081229
  Receipt Date: 20081215
  Transmission Date: 20090506
  Serious: Yes (Hospitalization, Disabling)
  Sender: FDA-Public Use
  Company Number: JP-MERCK-0811USA00827

PATIENT
  Age: 82 Year
  Sex: Male

DRUGS (1)
  1. ZETIA [Suspect]
     Indication: HYPERLIPIDAEMIA
     Route: 048
     Dates: start: 20080811, end: 20081029

REACTIONS (3)
  - DECREASED APPETITE [None]
  - FATIGUE [None]
  - RENAL FAILURE ACUTE [None]
